FAERS Safety Report 9924099 (Version 1)
Quarter: 2014Q1

REPORT INFORMATION
  Report Type: Spontaneous
  Country: PT (occurrence: PT)
  Receive Date: 20140226
  Receipt Date: 20140226
  Transmission Date: 20141002
  Serious: Yes (Other)
  Sender: FDA-Public Use
  Company Number: PT-ROCHE-1352831

PATIENT
  Sex: Female

DRUGS (1)
  1. BONVIVA [Suspect]
     Indication: OSTEOPOROSIS
     Route: 065

REACTIONS (6)
  - Abdominal pain upper [Unknown]
  - Arthralgia [Unknown]
  - Myalgia [Unknown]
  - Bone pain [Unknown]
  - Malaise [Unknown]
  - Pain [Unknown]
